FAERS Safety Report 22265354 (Version 1)
Quarter: 2023Q2

REPORT INFORMATION
  Report Type: Spontaneous
  Country: US (occurrence: None)
  Receive Date: 20230426
  Receipt Date: 20230426
  Transmission Date: 20230722
  Serious: Yes (Death, Hospitalization)
  Sender: FDA-Public Use
  Company Number: None

PATIENT
  Age: 63 Year
  Sex: Female
  Weight: 132.9 kg

DRUGS (1)
  1. WEGOVY [Suspect]
     Active Substance: SEMAGLUTIDE
     Dosage: FREQUENCY : WEEKLY;?
     Dates: start: 20230222, end: 20230329

REACTIONS (8)
  - Oral haemangioma [None]
  - Anaphylactic reaction [None]
  - Haemophilus infection [None]
  - Pneumonia aspiration [None]
  - Acute respiratory distress syndrome [None]
  - Candida test positive [None]
  - Ventricular dyssynchrony [None]
  - General physical health deterioration [None]

NARRATIVE: CASE EVENT DATE: 20230330
